FAERS Safety Report 4861794-4 (Version None)
Quarter: 2005Q4

REPORT INFORMATION
  Report Type: 
  Country: None (occurrence: None)
  Receive Date: 20051130
  Receipt Date: 20050813
  Transmission Date: 20060501
  Serious: Yes (Other)
  Sender: FDA-Public Use
  Company Number: 2005115968

PATIENT
  Age: 75 Year
  Sex: Male
  Weight: 90.7194 kg

DRUGS (1)
  1. ZYVOX [Suspect]
     Indication: ARTHRITIS INFECTIVE
     Dosage: (2 IN 1 D), ORAL
     Route: 048
     Dates: start: 20040812, end: 20050812

REACTIONS (1)
  - OPTIC NEUROPATHY [None]
